FAERS Safety Report 8083470-X (Version None)
Quarter: 2012Q1

REPORT INFORMATION
  Report Type: 
  Country: None (occurrence: None)
  Receive Date: 20120127
  Receipt Date: 20110201
  Transmission Date: 20120608
  Serious: No
  Sender: FDA-Public Use
  Company Number: US-ABBOTT-11P-163-0702721-00

PATIENT
  Sex: Male
  Weight: 133.48 kg

DRUGS (4)
  1. UNKNOWN ANXIETY MEDICATION [Concomitant]
     Indication: ANXIETY
  2. HUMIRA [Suspect]
     Indication: PSORIASIS
     Dates: start: 20100601, end: 20101201
  3. UNKNOWN BLOOD PRESSURE [Concomitant]
     Indication: HYPERTENSION
  4. COUMADIN [Concomitant]
     Indication: SURGERY

REACTIONS (1)
  - DRUG INEFFECTIVE [None]
